FAERS Safety Report 20037541 (Version 1)
Quarter: 2021Q4

REPORT INFORMATION
  Report Type: Spontaneous
  Country: DE (occurrence: DE)
  Receive Date: 20211105
  Receipt Date: 20211105
  Transmission Date: 20220303
  Serious: Yes (Hospitalization, Other)
  Sender: FDA-Public Use
  Company Number: DE-ADRED-06905-01

PATIENT
  Age: 53 Year
  Sex: Male

DRUGS (2)
  1. IBUPROFEN [Suspect]
     Active Substance: IBUPROFEN
     Indication: Sacral pain
     Dosage: BEDARF
     Dates: start: 202012, end: 202101
  2. SIMVASTATIN;SITAGLIPTIN [Concomitant]
     Dosage: 10 MILLIGRAM, QD, 0-0-1-0

REACTIONS (4)
  - Loss of consciousness [Unknown]
  - Abdominal pain [Unknown]
  - Pancreatitis acute [Unknown]
  - Vomiting [Unknown]
